FAERS Safety Report 8542811-7 (Version None)
Quarter: 2012Q3

REPORT INFORMATION
  Report Type: 
  Country: None (occurrence: None)
  Receive Date: 20120727
  Receipt Date: 20120717
  Transmission Date: 20120928
  Serious: No
  Sender: FDA-Public Use
  Company Number: US-BIOGENIDEC-2012BI022879

PATIENT
  Sex: Female

DRUGS (7)
  1. AVONEX [Suspect]
     Route: 030
     Dates: start: 20120612
  2. AVONEX [Suspect]
     Route: 030
     Dates: start: 20111208, end: 20120601
  3. CHLORTHALIDONE [Concomitant]
     Indication: HYPERTENSION
  4. AVONEX [Suspect]
     Indication: MULTIPLE SCLEROSIS
     Route: 030
     Dates: start: 20021001, end: 20030301
  5. BACLOFEN [Concomitant]
     Indication: PRODUCT USED FOR UNKNOWN INDICATION
  6. IMPLANTED MORPHINE PUMP [Concomitant]
     Indication: COMPLEX REGIONAL PAIN SYNDROME
     Dates: start: 20041201
  7. CLONAZEPAM [Concomitant]
     Indication: COMPLEX REGIONAL PAIN SYNDROME

REACTIONS (13)
  - SYNCOPE [None]
  - GASTROINTESTINAL DISORDER [None]
  - DEPRESSED MOOD [None]
  - FALL [None]
  - PAIN [None]
  - COUGH [None]
  - BLOOD POTASSIUM DECREASED [None]
  - ABASIA [None]
  - EMOTIONAL DISORDER [None]
  - INCONTINENCE [None]
  - THYROID FUNCTION TEST ABNORMAL [None]
  - WEIGHT DECREASED [None]
  - PAIN IN EXTREMITY [None]
